FAERS Safety Report 16172258 (Version 1)
Quarter: 2019Q2

REPORT INFORMATION
  Report Type: Spontaneous
  Country: BE (occurrence: BE)
  Receive Date: 20190409
  Receipt Date: 20190409
  Transmission Date: 20190711
  Serious: Yes (Other)
  Sender: FDA-Public Use
  Company Number: BE-AXELLIA-002375

PATIENT
  Age: 60 Year
  Sex: Female

DRUGS (3)
  1. MEROPENEM. [Suspect]
     Active Substance: MEROPENEM
     Indication: PNEUMONIA KLEBSIELLA
     Dosage: Q12H, ADJUSTED DOSING FOR A CREATININE CLEARANCE OF LESS THAN 30 ML/MIN
     Route: 042
  2. AMIKACIN. [Concomitant]
     Active Substance: AMIKACIN
  3. COLISTIN [Suspect]
     Active Substance: COLISTIN
     Indication: PNEUMONIA KLEBSIELLA
     Dosage: 0.5 MG/L FOR ENTEROBACTER CLOACAE COMPLEX

REACTIONS (1)
  - Drug resistance [Unknown]
